FAERS Safety Report 14889387 (Version 1)
Quarter: 2018Q2

REPORT INFORMATION
  Report Type: Spontaneous
  Country: US (occurrence: US)
  Receive Date: 20180514
  Receipt Date: 20180514
  Transmission Date: 20180711
  Serious: No
  Sender: FDA-Public Use
  Company Number: US-BIOGEN-2018BI00572106

PATIENT
  Sex: Female

DRUGS (1)
  1. TYSABRI [Suspect]
     Active Substance: NATALIZUMAB
     Indication: MULTIPLE SCLEROSIS
     Dosage: INFUSED OVER 1 HOUR
     Route: 065
     Dates: start: 20090403

REACTIONS (5)
  - Vision blurred [Recovered/Resolved]
  - Diplopia [Recovered/Resolved]
  - Muscle twitching [Recovered/Resolved]
  - Aspiration [Recovered/Resolved]
  - Tremor [Recovered/Resolved]
